FAERS Safety Report 6998849-4 (Version None)
Quarter: 2010Q3

REPORT INFORMATION
  Report Type: 
  Country: None (occurrence: None)
  Receive Date: 20100920
  Receipt Date: 20100429
  Transmission Date: 20110219
  Serious: No
  Sender: FDA-Public Use
  Company Number: US-ASTRAZENECA-2010SE19550

PATIENT
  Age: 53 Year
  Sex: Female
  Weight: 54.4 kg

DRUGS (3)
  1. SEROQUEL [Suspect]
     Indication: PSYCHOMOTOR HYPERACTIVITY
     Route: 048
     Dates: start: 20100101
  2. SEROQUEL [Suspect]
     Route: 048
     Dates: start: 20100101, end: 20100320
  3. KLONOPIN [Concomitant]

REACTIONS (7)
  - ANXIETY [None]
  - DEPRESSED MOOD [None]
  - DIZZINESS [None]
  - FATIGUE [None]
  - FRUSTRATION [None]
  - IMPAIRED DRIVING ABILITY [None]
  - PSYCHOMOTOR HYPERACTIVITY [None]
